FAERS Safety Report 5458736-X (Version None)
Quarter: 2007Q3

REPORT INFORMATION
  Report Type: 
  Country: None (occurrence: None)
  Receive Date: 20070919
  Receipt Date: 20070427
  Transmission Date: 20080115
  Serious: No
  Sender: FDA-Public Use
  Company Number: US-ASTRAZENECA-2007UW08254

PATIENT
  Age: 29 Year
  Sex: Female
  Weight: 65.8 kg

DRUGS (6)
  1. SEROQUEL [Suspect]
     Indication: DISSOCIATIVE IDENTITY DISORDER
     Route: 048
  2. SEROQUEL [Suspect]
     Indication: BIPOLAR DISORDER
     Route: 048
  3. MELLARIL [Concomitant]
  4. ZOLOFT [Concomitant]
  5. CELEXA [Concomitant]
  6. RITALIN [Concomitant]

REACTIONS (4)
  - ABNORMAL DREAMS [None]
  - AMNESIA [None]
  - ANGER [None]
  - SOMNAMBULISM [None]
